FAERS Safety Report 18608918 (Version 1)
Quarter: 2020Q4

REPORT INFORMATION
  Report Type: Spontaneous
  Country: KR (occurrence: KR)
  Receive Date: 20201213
  Receipt Date: 20201213
  Transmission Date: 20210114
  Serious: Yes (Other)
  Sender: FDA-Public Use
  Company Number: KR-SUNPHARMA-2020R1-269839AA

PATIENT
  Sex: Female

DRUGS (1)
  1. DUAC [Suspect]
     Active Substance: BENZOYL PEROXIDE\CLINDAMYCIN PHOSPHATE
     Indication: ACNE
     Dosage: UNK, QD
     Route: 065
     Dates: start: 20201109

REACTIONS (5)
  - Application site swelling [Unknown]
  - Application site pain [Unknown]
  - Application site erythema [Unknown]
  - Application site pustules [Unknown]
  - Application site pruritus [Unknown]

NARRATIVE: CASE EVENT DATE: 202011
